FAERS Safety Report 10880352 (Version 1)
Quarter: 2015Q1

REPORT INFORMATION
  Report Type: Spontaneous
  Country: US (occurrence: US)
  Receive Date: 20150302
  Receipt Date: 20150302
  Transmission Date: 20150721
  Serious: Yes (Hospitalization, Other)
  Sender: FDA-Public Use
  Company Number: US-MYLANLABS-2015M1005363

PATIENT

DRUGS (5)
  1. VITAMIN D                          /00107901/ [Concomitant]
     Active Substance: ERGOCALCIFEROL
     Indication: VITAMIN D DEFICIENCY
     Dosage: UNK
     Dates: start: 20120108
  2. AZATHIOPRINE. [Suspect]
     Active Substance: AZATHIOPRINE
     Indication: IMMUNOMODULATORY THERAPY
     Dosage: 100 MG, QD
     Dates: start: 20131216
  3. REMICADE [Suspect]
     Active Substance: INFLIXIMAB
     Indication: COLITIS ULCERATIVE
     Dosage: 700 MG ONCE EVERY 5WEEKS
     Route: 042
     Dates: start: 20140220, end: 20141216
  4. FOLIC ACID. [Concomitant]
     Active Substance: FOLIC ACID
     Indication: VITAMIN B1 DEFICIENCY
     Dosage: 1 MG, QD
     Dates: start: 20130415
  5. APRISO [Concomitant]
     Active Substance: MESALAMINE
     Indication: INFLAMMATION
     Dosage: 1500 MG, QD
     Dates: start: 20131202

REACTIONS (3)
  - Hemiplegia [Recovered/Resolved]
  - Migraine [Recovering/Resolving]
  - Epstein-Barr virus antibody positive [Recovered/Resolved]

NARRATIVE: CASE EVENT DATE: 20141106
